FAERS Safety Report 7006323-4 (Version None)
Quarter: 2010Q3

REPORT INFORMATION
  Report Type: 
  Country: None (occurrence: None)
  Receive Date: 20100921
  Receipt Date: 20100913
  Transmission Date: 20110219
  Serious: Yes (Other)
  Sender: FDA-Public Use
  Company Number: BR-PFIZER INC-2010109306

PATIENT
  Age: 54 Year
  Sex: Female
  Weight: 72 kg

DRUGS (13)
  1. CHAMPIX [Suspect]
     Indication: TOBACCO USER
     Dosage: UNK
     Route: 048
     Dates: start: 20100817, end: 20100101
  2. CHAMPIX [Suspect]
     Dosage: 1 MG, 2X/DAY (EVERY 12 HOURS)
     Route: 048
     Dates: start: 20100801
  3. BROMAZEPAM/SULPIRIDE [Concomitant]
     Indication: DEPRESSION
     Dosage: UNK
  4. LEXOTAN [Concomitant]
     Indication: DEPRESSION
     Dosage: UNK
     Dates: start: 19900101
  5. RIVOTRIL [Concomitant]
     Indication: DEPRESSION
     Dosage: 3X/DAY
     Dates: start: 20000101
  6. SUSTRATE [Concomitant]
     Indication: CARDIAC DISORDER
     Dosage: 3X/DAY (EVERY 8 HOURS)
     Dates: start: 20080101
  7. VASTAREL [Concomitant]
     Indication: CARDIAC DISORDER
     Dosage: 3X/DAY
     Dates: start: 20080101
  8. LIPIDIL [Concomitant]
     Indication: CARDIAC DISORDER
     Dosage: UNK
     Dates: start: 20080101
  9. LIPITOR [Concomitant]
     Indication: CARDIAC DISORDER
     Dosage: UNK
     Dates: start: 20080101
  10. ATENOLOL [Concomitant]
     Indication: CARDIAC DISORDER
     Dosage: UNK
     Dates: start: 20080101
  11. OMEPRAZOLE [Concomitant]
     Indication: GASTRITIS
     Dosage: UNK
  12. AMOXICILLIN [Concomitant]
     Dosage: UNK
  13. TYLENOL [Concomitant]
     Dosage: UNK

REACTIONS (1)
  - NERVOUSNESS [None]
